FAERS Safety Report 4944201-2 (Version None)
Quarter: 2006Q1

REPORT INFORMATION
  Report Type: 
  Country: None (occurrence: None)
  Receive Date: 20060315
  Receipt Date: 20060223
  Transmission Date: 20060701
  Serious: Yes (Other)
  Sender: FDA-Public Use
  Company Number: US-KINGPHARMUSA00001-K200600271

PATIENT
  Age: 77 Year
  Sex: Female
  Weight: 74 kg

DRUGS (13)
  1. SKELAXIN [Suspect]
     Indication: CERVICAL SPINAL STENOSIS
     Dosage: 400 MG, QD
     Route: 048
     Dates: start: 20060101
  2. SKELAXIN [Suspect]
     Dosage: 400 MG, BID
     Route: 048
     Dates: start: 20060101, end: 20060222
  3. LANTUS [Concomitant]
     Indication: DIABETES MELLITUS
     Dosage: 8 U, BID
     Route: 058
     Dates: start: 20050101
  4. AVAPRO [Concomitant]
     Indication: HYPERTENSION
     Dosage: 75 MG, QD
     Route: 048
  5. CENTRUM [Concomitant]
     Indication: VITAMIN SUPPLEMENTATION
     Dosage: 1 TABLET, QD
     Route: 048
  6. LEVOTHYROXINE SODIUM [Concomitant]
     Indication: HYPOTHYROIDISM
     Dosage: 50 MCG, QD
     Route: 048
  7. INDAPAMIDE [Concomitant]
     Indication: PROPHYLAXIS
     Dosage: 2.5 MG, QD
     Route: 048
  8. PRANDIN ^KUHN^ [Concomitant]
     Indication: DIABETES MELLITUS
     Dosage: 4 MG, QD
     Route: 048
  9. AMARYL [Concomitant]
     Indication: DIABETES MELLITUS
     Dosage: 2 MG, QD
     Route: 048
  10. PREMARIN [Concomitant]
     Indication: MENOPAUSE
     Dosage: .3 MG, QOD
     Route: 048
  11. GEMFIBROZIL [Concomitant]
     Indication: BLOOD TRIGLYCERIDES INCREASED
     Dosage: 600 MG, BID
     Route: 048
  12. CHONDROITIN W/GLUCOSAMINE [Concomitant]
     Indication: CERVICAL SPINAL STENOSIS
     Dosage: UNK, QD
     Route: 048
     Dates: start: 20060201
  13. OXYBUTININ [Concomitant]
     Indication: BLADDER SPASM
     Dosage: 5 MG, BID
     Route: 048

REACTIONS (1)
  - AGEUSIA [None]
